FAERS Safety Report 10068821 (Version 1)
Quarter: 2014Q2

REPORT INFORMATION
  Report Type: Spontaneous
  Country: JP (occurrence: JP)
  Receive Date: 20140409
  Receipt Date: 20140409
  Transmission Date: 20141212
  Serious: Yes (Other)
  Sender: FDA-Public Use
  Company Number: JP-PFIZER INC-2014095590

PATIENT
  Age: 73 Year
  Sex: Male

DRUGS (2)
  1. LYRICA [Suspect]
     Dosage: UNK, BEFORE BEDTIME
     Route: 048
  2. TRAMACET [Concomitant]

REACTIONS (5)
  - Compression fracture [Unknown]
  - Dizziness [Unknown]
  - Pain [Unknown]
  - Drug effect incomplete [Unknown]
  - Oedema peripheral [Unknown]
